FAERS Safety Report 10053501 (Version 1)
Quarter: 2014Q2

REPORT INFORMATION
  Report Type: Spontaneous
  Country: US (occurrence: US)
  Receive Date: 20140402
  Receipt Date: 20140402
  Transmission Date: 20141212
  Serious: Yes (Other)
  Sender: FDA-Public Use
  Company Number: US-BRISTOL-MYERS SQUIBB COMPANY-20572558

PATIENT
  Age: 76 Year
  Sex: Male
  Weight: 55.33 kg

DRUGS (2)
  1. ELIQUIS [Suspect]
     Indication: ATRIAL FIBRILLATION
     Dosage: STARTED:07MAR14
     Dates: start: 20140207
  2. AMIODARONE [Suspect]
     Dosage: 300 MG FROM APR

REACTIONS (4)
  - Cardioversion [Unknown]
  - Drug dose omission [Unknown]
  - Weight decreased [Unknown]
  - Diarrhoea [Unknown]
